FAERS Safety Report 8959523 (Version 1)
Quarter: 2012Q4

REPORT INFORMATION
  Report Type: Report from Study
  Country: GR (occurrence: GR)
  Receive Date: 20121212
  Receipt Date: 20121212
  Transmission Date: 20130627
  Serious: Yes (Hospitalization)
  Sender: FDA-Public Use
  Company Number: GR-ABBOTT-12P-066-1019946-00

PATIENT
  Age: 45 Year
  Sex: Female
  Weight: 72 kg

DRUGS (4)
  1. HUMIRA [Suspect]
     Indication: PSORIATIC ARTHROPATHY
     Route: 058
     Dates: start: 20120116, end: 20120614
  2. HUMIRA [Suspect]
     Route: 058
     Dates: start: 201210
  3. METHOTREXATE [Concomitant]
     Indication: PSORIATIC ARTHROPATHY
     Dosage: 10mg / w
     Route: 058
     Dates: start: 20101009, end: 20120614
  4. METHOTREXATE [Concomitant]
     Dosage: 10mg/w
     Route: 058
     Dates: start: 201210

REACTIONS (2)
  - Ovarian cyst [Recovered/Resolved]
  - Respiratory distress [Unknown]
